FAERS Safety Report 9813728 (Version 1)
Quarter: 2014Q1

REPORT INFORMATION
  Report Type: Spontaneous
  Country: GB (occurrence: GB)
  Receive Date: 20140113
  Receipt Date: 20140113
  Transmission Date: 20141002
  Serious: Yes (Other)
  Sender: FDA-Public Use
  Company Number: GB-TEVA-455416ISR

PATIENT
  Age: 40 Year
  Sex: Female
  Weight: 47.8 kg

DRUGS (2)
  1. AMOXICILLIN [Suspect]
     Dates: start: 20131231
  2. ERYTHROMYCIN [Concomitant]
     Dates: start: 20131231

REACTIONS (2)
  - Swelling face [Recovered/Resolved]
  - Lip swelling [Recovered/Resolved]
